FAERS Safety Report 4643705-X (Version None)
Quarter: 2005Q2

REPORT INFORMATION
  Report Type: 
  Country: None (occurrence: None)
  Receive Date: 20050425
  Receipt Date: 20050323
  Transmission Date: 20051028
  Serious: Yes (Hospitalization)
  Sender: FDA-Public Use
  Company Number: PHHO2005FR04927

PATIENT
  Age: 67 Year
  Sex: Male

DRUGS (8)
  1. SPP  V SPP V HCTZ V PLACEBO [Suspect]
     Indication: ESSENTIAL HYPERTENSION
     Dosage: 150 MG, QD
     Route: 048
     Dates: start: 20041123, end: 20050207
  2. HYZAAR [Concomitant]
     Dosage: UNK, UNK
     Dates: start: 19980806
  3. BENAZEPRIL HCL [Concomitant]
  4. AMARYL [Concomitant]
  5. ACETYL SALICYLIC ACID USP BAT [Concomitant]
  6. GLUCOR [Concomitant]
     Dosage: 50 MG, TID
  7. HYDROCHLOROTHIAZIDE [Suspect]
     Indication: ESSENTIAL HYPERTENSION
     Dosage: 6.25 MG, QD
     Dates: start: 20041123, end: 20050207
  8. KARDEGIC [Concomitant]

REACTIONS (15)
  - ATHEROSCLEROSIS [None]
  - BUNDLE BRANCH BLOCK LEFT [None]
  - BUNDLE BRANCH BLOCK RIGHT [None]
  - CARDIAC DISORDER [None]
  - DIABETES MELLITUS INADEQUATE CONTROL [None]
  - DRUG INEFFECTIVE [None]
  - DYSARTHRIA [None]
  - ELECTROCARDIOGRAM REPOLARISATION ABNORMALITY [None]
  - EXTENSOR PLANTAR RESPONSE [None]
  - FACIAL PALSY [None]
  - HEMIPARESIS [None]
  - ISCHAEMIC STROKE [None]
  - PAROTID GLAND ENLARGEMENT [None]
  - SINUS TACHYCARDIA [None]
  - SUPRAVENTRICULAR EXTRASYSTOLES [None]
